FAERS Safety Report 26184383 (Version 1)
Quarter: 2025Q4

REPORT INFORMATION
  Report Type: Spontaneous
  Country: CN (occurrence: CN)
  Receive Date: 20251222
  Receipt Date: 20251222
  Transmission Date: 20260117
  Serious: Yes (Other)
  Sender: BEIGENE
  Company Number: CN-BEONEMEDICINES-BGN-2025-022456

PATIENT
  Age: 56 Year
  Sex: Male

DRUGS (5)
  1. BRUKINSA [Suspect]
     Active Substance: ZANUBRUTINIB
     Indication: Mantle cell lymphoma
     Dosage: 160 MILLIGRAM, BID
     Route: 061
     Dates: start: 20251203
  2. TISLELIZUMAB [Suspect]
     Active Substance: TISLELIZUMAB
     Indication: Mantle cell lymphoma
     Dosage: 200 MILLIGRAM
     Dates: start: 20251204, end: 20251204
  3. RITUXIMAB [Suspect]
     Active Substance: RITUXIMAB
     Indication: Mantle cell lymphoma
     Dosage: 600 MILLIGRAM
     Dates: start: 20251203, end: 20251203
  4. BENDAMUSTINE HYDROCHLORIDE [Suspect]
     Active Substance: BENDAMUSTINE HYDROCHLORIDE
     Indication: Mantle cell lymphoma
     Dosage: 125 MILLIGRAM D2-3 Q3W
     Dates: start: 20251205, end: 20251206
  5. PREDNISONE ACETATE [Suspect]
     Active Substance: PREDNISONE ACETATE
     Indication: Mantle cell lymphoma
     Dosage: 50 MILLIGRAM, BID
     Route: 061
     Dates: start: 20251205, end: 20251209

REACTIONS (2)
  - White blood cell count decreased [Recovering/Resolving]
  - Off label use [Unknown]

NARRATIVE: CASE EVENT DATE: 20251207
